FAERS Safety Report 5130797-7 (Version None)
Quarter: 2006Q4

REPORT INFORMATION
  Report Type: 
  Country: None (occurrence: None)
  Receive Date: 20061013
  Receipt Date: 20061002
  Transmission Date: 20070319
  Serious: Yes (Other)
  Sender: FDA-Public Use
  Company Number: 2006120341

PATIENT
  Age: 66 Year
  Sex: Male

DRUGS (6)
  1. CHANTIX [Suspect]
     Indication: SMOKING CESSATION THERAPY
     Dates: start: 20060901
  2. AVELOX [Concomitant]
  3. CITALOPRAM HYDROBROMIDE (CITALOPRAM) [Concomitant]
  4. TOPROL-XL [Concomitant]
  5. CRESTOR [Concomitant]
  6. FOLIC ACID [Concomitant]

REACTIONS (3)
  - HALLUCINATION, VISUAL [None]
  - SLEEP TALKING [None]
  - SLEEP WALKING [None]
